FAERS Safety Report 17292386 (Version 2)
Quarter: 2020Q1

REPORT INFORMATION
  Report Type: Spontaneous
  Country: US (occurrence: US)
  Receive Date: 20200121
  Receipt Date: 20200323
  Transmission Date: 20200409
  Serious: Yes (Other)
  Sender: FDA-Public Use
  Company Number: US-BAYER-2019-230871

PATIENT
  Age: 46 Year
  Sex: Female
  Weight: 89.74 kg

DRUGS (1)
  1. MIRENA [Suspect]
     Active Substance: LEVONORGESTREL
     Indication: CONTRACEPTION
     Dosage: 20?G PER DAY, CONT
     Route: 015
     Dates: start: 20191213, end: 20191213

REACTIONS (4)
  - Device use issue [None]
  - Uterine cervix stenosis [Recovered/Resolved]
  - Complication of device insertion [None]
  - Procedural haemorrhage [Recovered/Resolved]

NARRATIVE: CASE EVENT DATE: 20191213
